FAERS Safety Report 9067496 (Version 1)
Quarter: 2013Q1

REPORT INFORMATION
  Report Type: Spontaneous
  Country: IT (occurrence: GB)
  Receive Date: 20130214
  Receipt Date: 20130214
  Transmission Date: 20140127
  Serious: Yes (Other)
  Sender: FDA-Public Use
  Company Number: IT-MYLANLABS-2013S1002426

PATIENT
  Age: 53 Year
  Sex: Female

DRUGS (3)
  1. TERBINAFINE [Suspect]
     Indication: ONYCHOMYCOSIS
     Route: 048
     Dates: start: 20120808, end: 20120826
  2. CALCIUM + VITAMIN D /01483701/ [Concomitant]
     Indication: PRODUCT USED FOR UNKNOWN INDICATION
  3. MIGRALEVE /00116401/ [Concomitant]
     Indication: PRODUCT USED FOR UNKNOWN INDICATION

REACTIONS (4)
  - Blood test abnormal [Unknown]
  - Liver function test abnormal [Unknown]
  - Malaise [Unknown]
  - Rash generalised [Recovered/Resolved]
